FAERS Safety Report 6045575-4 (Version None)
Quarter: 2009Q1

REPORT INFORMATION
  Report Type: 
  Country: None (occurrence: None)
  Receive Date: 20090121
  Receipt Date: 20090112
  Transmission Date: 20090719
  Serious: Yes (Hospitalization)
  Sender: FDA-Public Use
  Company Number: DE-ASTRAZENECA-2009PK00363

PATIENT
  Age: 80 Year
  Sex: Female
  Weight: 70 kg

DRUGS (7)
  1. BISOPROLOL FUMARATE [Suspect]
     Indication: HYPERTENSION
     Route: 048
  2. DELMUNO [Interacting]
     Indication: HYPERTENSION
     Route: 048
     Dates: start: 20080730
  3. ALDACTONE [Interacting]
     Indication: HYPERTENSION
     Route: 048
     Dates: end: 20080825
  4. MOXONIDINE [Concomitant]
     Indication: HYPERTENSION
     Route: 048
     Dates: start: 20080730
  5. PANTOZOL [Concomitant]
     Indication: REFLUX OESOPHAGITIS
     Route: 048
  6. FERRO-SANOL DUODENAL [Concomitant]
     Indication: IRON DEFICIENCY ANAEMIA
     Dosage: UNKNOWN EXACT DOSE
     Route: 048
  7. DIGITOXIN TAB [Concomitant]
     Indication: CARDIAC FAILURE
     Route: 048
     Dates: end: 20080826

REACTIONS (4)
  - DRUG INTERACTION [None]
  - HYPERKALAEMIA [None]
  - HYPONATRAEMIA [None]
  - SYNCOPE [None]
